FAERS Safety Report 18382937 (Version 2)
Quarter: 2020Q4

REPORT INFORMATION
  Report Type: Spontaneous
  Country: FR (occurrence: FR)
  Receive Date: 20201014
  Receipt Date: 20201204
  Transmission Date: 20210114
  Serious: Yes (Other)
  Sender: FDA-Public Use
  Company Number: FR-GILEAD-2020-0498260

PATIENT
  Age: 75 Year
  Sex: Female

DRUGS (3)
  1. AERIUS [EBASTINE] [Suspect]
     Active Substance: EBASTINE
     Indication: HYPERSENSITIVITY
     Route: 065
  2. EPCLUSA [Suspect]
     Active Substance: SOFOSBUVIR\VELPATASVIR
     Indication: PRODUCT USED FOR UNKNOWN INDICATION
     Dosage: UNK
     Route: 065
     Dates: start: 202009
  3. NUROFEN [IBUPROFEN] [Concomitant]
     Active Substance: IBUPROFEN

REACTIONS (10)
  - Nausea [Unknown]
  - Migraine [Not Recovered/Not Resolved]
  - Emotional disorder [Unknown]
  - Dizziness [Unknown]
  - Feeling drunk [Unknown]
  - Cognitive disorder [Not Recovered/Not Resolved]
  - Gait disturbance [Not Recovered/Not Resolved]
  - Fatigue [Not Recovered/Not Resolved]
  - Hypersensitivity [Unknown]
  - Amnesia [Unknown]

NARRATIVE: CASE EVENT DATE: 2020
